FAERS Safety Report 11495759 (Version 2)
Quarter: 2015Q4

REPORT INFORMATION
  Report Type: Spontaneous
  Country: US (occurrence: US)
  Receive Date: 20150911
  Receipt Date: 20151019
  Transmission Date: 20160304
  Serious: No
  Sender: FDA-Public Use
  Company Number: US-PFIZER INC-2015296299

PATIENT
  Age: 51 Year
  Sex: Female

DRUGS (1)
  1. GABAPENTIN. [Suspect]
     Active Substance: GABAPENTIN
     Indication: PAIN
     Dosage: UNK
     Route: 048

REACTIONS (4)
  - Aphasia [Unknown]
  - Memory impairment [Unknown]
  - Product use issue [Unknown]
  - Condition aggravated [Unknown]
